FAERS Safety Report 18167510 (Version 1)
Quarter: 2020Q3

REPORT INFORMATION
  Report Type: Spontaneous
  Country: US (occurrence: US)
  Receive Date: 20200818
  Receipt Date: 20200818
  Transmission Date: 20201103
  Serious: No
  Sender: FDA-Public Use
  Company Number: None

PATIENT
  Age: 69 Year
  Sex: Male
  Weight: 141.3 kg

DRUGS (1)
  1. GAMUNEX?C [Suspect]
     Active Substance: HUMAN IMMUNOGLOBULIN G
     Route: 041
     Dates: start: 20200803, end: 20200805

REACTIONS (2)
  - Urticaria [None]
  - Rash [None]

NARRATIVE: CASE EVENT DATE: 20200805
